FAERS Safety Report 5102044-3 (Version None)
Quarter: 2006Q3

REPORT INFORMATION
  Report Type: 
  Country: None (occurrence: None)
  Receive Date: 20060731
  Receipt Date: 20060511
  Transmission Date: 20061208
  Serious: No
  Sender: FDA-Public Use
  Company Number: 2006PV013667

PATIENT
  Age: 70 Year
  Sex: Male
  Weight: 100.6985 kg

DRUGS (5)
  1. BYETTA [Suspect]
     Indication: DIABETES MELLITUS NON-INSULIN-DEPENDENT
     Dosage: 10 MCG; BID; SC, SEE IMAGE
     Route: 058
     Dates: start: 20060403, end: 20060502
  2. BYETTA [Suspect]
     Indication: DIABETES MELLITUS NON-INSULIN-DEPENDENT
     Dosage: 10 MCG; BID; SC, SEE IMAGE
     Route: 058
     Dates: start: 20060503, end: 20060601
  3. LANTUS [Concomitant]
  4. ACTOS [Concomitant]
  5. HUMALOG [Concomitant]

REACTIONS (9)
  - CONSTIPATION [None]
  - DECREASED APPETITE [None]
  - DISORIENTATION [None]
  - DIZZINESS [None]
  - DRUG INEFFECTIVE [None]
  - FATIGUE [None]
  - HYPERSOMNIA [None]
  - NAUSEA [None]
  - WEIGHT DECREASED [None]
